FAERS Safety Report 17728809 (Version 1)
Quarter: 2020Q2

REPORT INFORMATION
  Report Type: Spontaneous
  Country: US (occurrence: US)
  Receive Date: 20200429
  Receipt Date: 20200429
  Transmission Date: 20200714
  Serious: Yes (Other)
  Sender: FDA-Public Use
  Company Number: None

PATIENT
  Age: 28 Year
  Weight: 58.97 kg

DRUGS (5)
  1. ESTRADIOL 2MG [Suspect]
     Active Substance: ESTRADIOL
     Indication: GENDER DYSPHORIA
     Dates: start: 20160503, end: 20200129
  2. YVVAOSE [Concomitant]
  3. PROVIA [Concomitant]
  4. ADDERALL [Concomitant]
     Active Substance: AMPHETAMINE ASPARTATE\AMPHETAMINE SULFATE\DEXTROAMPHETAMINE SACCHARATE\DEXTROAMPHETAMINE SULFATE
  5. SPINONILACTONE [Concomitant]

REACTIONS (1)
  - Breast tenderness [None]

NARRATIVE: CASE EVENT DATE: 20200129
